FAERS Safety Report 16965586 (Version 2)
Quarter: 2019Q4

REPORT INFORMATION
  Report Type: Report from Study
  Country: DE (occurrence: DE)
  Receive Date: 20191028
  Receipt Date: 20191113
  Transmission Date: 20200122
  Serious: Yes (Other)
  Sender: FDA-Public Use
  Company Number: PHHY2019DE168930

PATIENT
  Sex: Female
  Weight: 75 kg

DRUGS (4)
  1. GILENYA [Suspect]
     Active Substance: FINGOLIMOD HYDROCHLORIDE
     Indication: MULTIPLE SCLEROSIS
     Dosage: 0.5 MG, QD
     Route: 048
     Dates: start: 20181018, end: 20181126
  2. NEO-EUNOMIN [Concomitant]
     Active Substance: CHLORMADINONE ACETATE\ETHINYL ESTRADIOL
     Indication: CONTRACEPTION
     Dosage: 1 DF, UNK
     Route: 065
  3. MADINANCE [Concomitant]
     Indication: CONTRACEPTION
     Dosage: 1 DF, UNK
     Route: 065
  4. GILENYA [Suspect]
     Active Substance: FINGOLIMOD HYDROCHLORIDE
     Dosage: 0.5 MG, QD
     Route: 048
     Dates: start: 20181205, end: 20190505

REACTIONS (6)
  - Fatigue [Not Recovered/Not Resolved]
  - Lymphopenia [Recovered/Resolved]
  - Nasopharyngitis [Recovered/Resolved]
  - Lymphopenia [Recovered/Resolved]
  - Lymphopenia [Recovered/Resolved]
  - Headache [Recovered/Resolved]

NARRATIVE: CASE EVENT DATE: 20181127
